FAERS Safety Report 11429309 (Version 1)
Quarter: 2015Q3

REPORT INFORMATION
  Report Type: Spontaneous
  Country: US (occurrence: US)
  Receive Date: 20150828
  Receipt Date: 20150828
  Transmission Date: 20151125
  Serious: No
  Sender: FDA-Public Use
  Company Number: US-ROCHE-1180685

PATIENT
  Sex: Male
  Weight: 80 kg

DRUGS (4)
  1. PEGASYS [Suspect]
     Active Substance: PEGINTERFERON ALFA-2A
     Indication: CHRONIC HEPATITIS C
     Dosage: PROCLICK
     Route: 058
     Dates: start: 20130111
  2. TELAPREVIR [Suspect]
     Active Substance: TELAPREVIR
     Indication: CHRONIC HEPATITIS C
     Route: 048
     Dates: start: 20130111, end: 20130304
  3. COPEGUS [Suspect]
     Active Substance: RIBAVIRIN
     Route: 048
  4. COPEGUS [Suspect]
     Active Substance: RIBAVIRIN
     Indication: CHRONIC HEPATITIS C
     Dosage: DIVIDED DOSE
     Route: 048
     Dates: start: 20130111

REACTIONS (5)
  - Vomiting [Unknown]
  - Overdose [Unknown]
  - Decreased appetite [Recovering/Resolving]
  - Influenza like illness [Unknown]
  - Nausea [Recovered/Resolved]
